FAERS Safety Report 18898138 (Version 1)
Quarter: 2021Q1

REPORT INFORMATION
  Report Type: Spontaneous
  Country: US (occurrence: US)
  Receive Date: 20210216
  Receipt Date: 20210216
  Transmission Date: 20210420
  Serious: No
  Sender: FDA-Public Use
  Company Number: US-GILEAD-2021-0514828

PATIENT

DRUGS (1)
  1. CAYSTON [Suspect]
     Active Substance: AZTREONAM
     Indication: PNEUMONIA
     Dosage: UNK
     Route: 055

REACTIONS (2)
  - Increased viscosity of bronchial secretion [Recovering/Resolving]
  - Off label use [Not Recovered/Not Resolved]
